FAERS Safety Report 13109532 (Version 6)
Quarter: 2017Q1

REPORT INFORMATION
  Report Type: Report from Study
  Country: US (occurrence: US)
  Receive Date: 20170112
  Receipt Date: 20170306
  Transmission Date: 20170428
  Serious: Yes (Death, Hospitalization, Other)
  Sender: FDA-Public Use
  Company Number: US-009507513-1701USA003172

PATIENT
  Age: 68 Year
  Sex: Male
  Weight: 102.49 kg

DRUGS (18)
  1. PROTONIX [Concomitant]
     Active Substance: PANTOPRAZOLE SODIUM
     Dosage: TAKE ONE TABLET BY MOUTH ONCE DAILY, SWALLOW WHOLE
     Route: 048
  2. FLOMAX [Concomitant]
     Active Substance: TAMSULOSIN HYDROCHLORIDE
     Dosage: TAKE 0.4 MG BY MOUTH EVERY EVENING AFTER DINNER, SWALLOW WHOLE
     Route: 048
  3. NORCO [Concomitant]
     Active Substance: ACETAMINOPHEN\HYDROCODONE BITARTRATE
     Indication: PAIN
     Dosage: STREGTH: 5-325 MG, TAKE 1 TABLET BY MOUTH EVERY 4 TO 6 HOURS AS NEEDED
     Route: 048
  4. OMEGA-3 MARINE TRIGLYCERIDES [Concomitant]
     Active Substance: FISH OIL
     Dosage: TAKE 1400 MG BY MOUTH
  5. KEYTRUDA [Suspect]
     Active Substance: PEMBROLIZUMAB
     Indication: SMALL CELL LUNG CANCER METASTATIC
     Dosage: 200 MG, Q3W
     Route: 042
     Dates: start: 201611, end: 2016
  6. VITAMIN B COMPLEX [Concomitant]
     Active Substance: CYANOCOBALAMIN\DEXPANTHENOL\NIACINAMIDE\PYRIDOXINE HYDROCHLORIDE\RIBOFLAVIN 5^-PHOSPHATE SODIUM\THIAMINE HYDROCHLORIDE\VITAMIN B COMPLEX
     Dosage: TAKE 1 CAPSULE BY MOUTH DAILY
     Route: 048
  7. VITAMINS (UNSPECIFIED) [Concomitant]
     Active Substance: VITAMINS
     Dosage: TAKE BY MOUTH
     Route: 048
  8. DECADRON [Concomitant]
     Active Substance: DEXAMETHASONE
     Dosage: TAKE BY MOUTH DAILY
     Route: 048
  9. LOPRESSOR [Concomitant]
     Active Substance: METOPROLOL TARTRATE
     Dosage: TAKE 1 TABLET BY MOUTH TWO TIMES DAILY
     Route: 048
  10. DECADRON [Concomitant]
     Active Substance: DEXAMETHASONE
     Dosage: 1 TABLET, TWO TIMES DAILY. AS DIRECTED DURING CHEMOTHERAPY (PATIENT TAKING DIFFERERNTLY: 2 MG, TWO )
     Route: 048
  11. VITAMIN E ACETATE [Concomitant]
     Active Substance: .ALPHA.-TOCOPHEROL ACETATE
     Dosage: TAKE BY MOUTH
     Route: 048
  12. DECADRON [Concomitant]
     Active Substance: DEXAMETHASONE
     Dosage: 2 TABS DAILY FOR 10 DAYS
     Route: 048
  13. ATIVAN [Concomitant]
     Active Substance: LORAZEPAM
     Dosage: TAKE 1 MG BY MOUTH NIGHTLY
     Route: 048
  14. DECADRON [Concomitant]
     Active Substance: DEXAMETHASONE
     Dosage: 3 TABS DAILY FOR 10 DAYS
     Route: 048
  15. MULTAQ [Concomitant]
     Active Substance: DRONEDARONE
     Dosage: TAKE 1 TABLET BY MOUTH TWO TIMES DAILY (WITH BREAKFAST AND DINNER)
     Route: 048
  16. CHOLECALCIFEROL [Concomitant]
     Active Substance: CHOLECALCIFEROL
     Dosage: STRENGTH: 1000 UNIT, TAKE BY MOUTH
     Route: 048
  17. ZOCOR [Concomitant]
     Active Substance: SIMVASTATIN
     Dosage: TAKE 20 MG BY MOUTH
     Route: 048
  18. FERROUS SULFATE. [Concomitant]
     Active Substance: FERROUS SULFATE
     Dosage: STRENGTH: 325 MG (65 MG IRON)
     Route: 048

REACTIONS (10)
  - Oedema peripheral [Recovered/Resolved]
  - Atrial fibrillation [Recovered/Resolved]
  - Clostridium difficile infection [Recovered/Resolved]
  - Sciatica [Recovered/Resolved]
  - Back pain [Unknown]
  - Malignant neoplasm progression [Fatal]
  - Fatigue [Recovered/Resolved]
  - Pneumonia [Recovered/Resolved]
  - Upper gastrointestinal haemorrhage [Recovered/Resolved]
  - Weight increased [Unknown]

NARRATIVE: CASE EVENT DATE: 20161224
